FAERS Safety Report 9542387 (Version 1)
Quarter: 2013Q3

REPORT INFORMATION
  Report Type: Spontaneous
  Country: US (occurrence: None)
  Receive Date: 20130919
  Receipt Date: 20130919
  Transmission Date: 20140515
  Serious: Yes (Disabling)
  Sender: FDA-Public Use
  Company Number: None

PATIENT
  Age: 58 Year
  Sex: Female
  Weight: 68.04 kg

DRUGS (2)
  1. NUCYNTA [Suspect]
     Indication: FIBROMYALGIA
     Route: 048
     Dates: start: 20120919, end: 20121114
  2. SAVELLA [Suspect]
     Route: 048
     Dates: start: 20120104, end: 20130306

REACTIONS (1)
  - Blood pressure decreased [None]
